FAERS Safety Report 11620167 (Version 3)
Quarter: 2016Q1

REPORT INFORMATION
  Report Type: Spontaneous
  Country: US (occurrence: US)
  Receive Date: 20151012
  Receipt Date: 20160108
  Transmission Date: 20160525
  Serious: No
  Sender: FDA-Public Use
  Company Number: US-SA-2015SA133546

PATIENT
  Age: 18 Year
  Sex: Female

DRUGS (1)
  1. AFREZZA [Suspect]
     Active Substance: INSULIN HUMAN
     Indication: DIABETES MELLITUS
     Dosage: AT A DOSE BASED ON CARBOHYDRATE CONTENT OF HER MEALS?INHALER
     Route: 065

REACTIONS (6)
  - Incorrect product storage [Unknown]
  - Impaired healing [Not Recovered/Not Resolved]
  - Medication residue present [Unknown]
  - Product use issue [Unknown]
  - Blood glucose increased [Unknown]
  - Glycosylated haemoglobin decreased [Unknown]
